FAERS Safety Report 10990323 (Version 1)
Quarter: 2015Q1

REPORT INFORMATION
  Report Type: Spontaneous
  Country: US (occurrence: None)
  Receive Date: 20150226
  Receipt Date: 20150226
  Transmission Date: 20150721
  Serious: Yes (Other)
  Sender: FDA-Public Use
  Company Number: TPA2012A00866

PATIENT
  Sex: Male

DRUGS (11)
  1. CYPROHEPTADINE HCL (CYPROHEPTADINE HYDROCHLORIDE) [Concomitant]
  2. RISPERIDONE (RISPERIDONE) [Concomitant]
     Active Substance: RISPERIDONE
  3. BUSPIRONE HCL (BUSPIRONE HYDROCHLORIDE) [Concomitant]
  4. SERTRALINE HCL  (SERTRALINE HYDRLOCHLORIDE) [Concomitant]
  5. METOPROLOL TARTRATE (METOPROLOL TARTRATE) [Concomitant]
  6. ALBUTEROL SULFATE (SALBUTAMOL SULFATE) [Concomitant]
     Active Substance: ALBUTEROL SULFATE
  7. GLYBURIDE (GLIBENCLAMIDE) [Concomitant]
     Active Substance: GLYBURIDE
  8. METFORMIN [Concomitant]
     Active Substance: METFORMIN HYDROCHLORIDE
  9. ACTOS [Suspect]
     Active Substance: PIOGLITAZONE HYDROCHLORIDE
     Indication: TYPE 2 DIABETES MELLITUS
     Route: 048
     Dates: start: 20100618
  10. ENALAPRIL MALEATE (ENALAPRIL MALEATE) [Concomitant]
     Active Substance: ENALAPRIL MALEATE
  11. HYDROXYZINE PAMOATE (HYDROXYZINE EMBONATE) [Concomitant]

REACTIONS (3)
  - Dysuria [None]
  - Micturition urgency [None]
  - Bladder cancer [None]
